FAERS Safety Report 8217736-7 (Version None)
Quarter: 2012Q1

REPORT INFORMATION
  Report Type: 
  Country: None (occurrence: None)
  Receive Date: 20120319
  Receipt Date: 20120306
  Transmission Date: 20120608
  Serious: Yes (Hospitalization)
  Sender: FDA-Public Use
  Company Number: BE-JNJFOC-20120307563

PATIENT
  Sex: Male

DRUGS (5)
  1. TRAMADOL HCL [Suspect]
     Route: 048
     Dates: start: 20120101, end: 20120201
  2. VENTOLIN [Concomitant]
     Indication: ASTHMA
     Route: 055
  3. KEPPRA [Concomitant]
     Indication: EPILEPSY
     Route: 048
     Dates: start: 20110101
  4. FLUTICASONE PROPIONATE/SALMETEROL [Concomitant]
     Indication: ASTHMA
     Route: 055
  5. TRAMADOL HCL [Suspect]
     Indication: BACK PAIN
     Route: 048
     Dates: start: 20120201, end: 20120201

REACTIONS (1)
  - EPILEPSY [None]
